FAERS Safety Report 12336596 (Version 1)
Quarter: 2016Q2

REPORT INFORMATION
  Report Type: Spontaneous
  Country: US (occurrence: None)
  Receive Date: 20160504
  Receipt Date: 20160504
  Transmission Date: 20160815
  Serious: Yes (Life-Threatening, Hospitalization)
  Sender: FDA-Public Use
  Company Number: None

PATIENT
  Age: 64 Year
  Sex: Male
  Weight: 96.1 kg

DRUGS (1)
  1. ENOXAPARIN [Suspect]
     Active Substance: ENOXAPARIN
     Indication: ATRIAL FIBRILLATION
     Dosage: 100 UNITS BID SQ
     Route: 058
     Dates: start: 20151229, end: 20160103

REACTIONS (6)
  - Haemoglobin decreased [None]
  - Retroperitoneal haemorrhage [None]
  - Fluid overload [None]
  - Acute kidney injury [None]
  - Liver function test increased [None]
  - Arrhythmia [None]

NARRATIVE: CASE EVENT DATE: 20160104
